FAERS Safety Report 5927452-X (Version None)
Quarter: 2008Q4

REPORT INFORMATION
  Report Type: 
  Country: None (occurrence: None)
  Receive Date: 20081021
  Receipt Date: 20081021
  Transmission Date: 20090506
  Serious: No
  Sender: FDA-Public Use
  Company Number: None

PATIENT
  Age: 35 Year
  Sex: Male

DRUGS (9)
  1. FLEBOGAMMA [Suspect]
     Indication: CONGENITAL HYPOGAMMAGLOBULINAEMIA
     Dosage: 20 G (ONCE A MONTH)
     Route: 042
     Dates: start: 20080108, end: 20080820
  2. FLEBOGAMMA [Suspect]
  3. FLEBOGAMMA [Suspect]
  4. FLEBOGAMMA [Suspect]
  5. GAMMAGARD LIQUID [Suspect]
  6. GAMMAGARD LIQUID [Suspect]
  7. GAMMAGARD LIQUID [Suspect]
  8. GAMMAGARD LIQUID [Suspect]
  9. GAMMAGARD LIQUID [Suspect]

REACTIONS (4)
  - COLITIS [None]
  - ENTEROCOLITIS INFECTIOUS [None]
  - HEPATITIS B [None]
  - HEPATITIS INFECTIOUS [None]
